FAERS Safety Report 17766480 (Version 1)
Quarter: 2020Q2

REPORT INFORMATION
  Report Type: Spontaneous
  Country: PL (occurrence: PL)
  Receive Date: 20200511
  Receipt Date: 20200511
  Transmission Date: 20200714
  Serious: Yes (Hospitalization, Other)
  Sender: FDA-Public Use
  Company Number: PL-PFIZER INC-2020185591

PATIENT
  Age: 31 Year
  Sex: Female

DRUGS (3)
  1. ACODIN [Suspect]
     Active Substance: DEXTROMETHORPHAN HYDROBROMIDE
     Dosage: 4500 MG (150 X 30 MG)
     Route: 048
  2. ALPRAZOLAM. [Suspect]
     Active Substance: ALPRAZOLAM
     Dosage: 7.5 MG (30 X 0.25 MG)
     Route: 048
  3. MIANSERINE [MIANSERIN HYDROCHLORIDE] [Suspect]
     Active Substance: MIANSERIN HYDROCHLORIDE
     Dosage: 300 MG (30 X 10 MG)
     Route: 048

REACTIONS (5)
  - Toxicity to various agents [Recovered/Resolved]
  - Agitation [Recovered/Resolved]
  - Intentional overdose [Unknown]
  - Drug abuse [Unknown]
  - Illogical thinking [Recovered/Resolved]

NARRATIVE: CASE EVENT DATE: 20200412
